FAERS Safety Report 8807512 (Version 3)
Quarter: 2013Q1

REPORT INFORMATION
  Report Type: Spontaneous
  Country: US (occurrence: US)
  Receive Date: 20120925
  Receipt Date: 20130304
  Transmission Date: 20140127
  Serious: Yes (Other)
  Sender: FDA-Public Use
  Company Number: US-PFIZER INC-2012231478

PATIENT
  Age: 4 Year
  Sex: Female
  Weight: 14.06 kg

DRUGS (3)
  1. PHOSPHOLINE IODIDE [Suspect]
     Indication: STRABISMUS
     Dosage: 1 GTT, BOTH EYES DAILY
     Route: 047
     Dates: start: 20120706, end: 201209
  2. PHOSPHOLINE IODIDE [Suspect]
     Dosage: UNK
     Route: 047
     Dates: start: 2012, end: 20121025
  3. PHENYLEPHRINE [Concomitant]
     Indication: IRIS CYST
     Dosage: 1 GTT, 2X/DAY (1 GTT BID BOTH EYES)
     Dates: start: 20120706, end: 20121025

REACTIONS (3)
  - Diplopia [Unknown]
  - Strabismus [Unknown]
  - Iris cyst [Recovered/Resolved with Sequelae]
